FAERS Safety Report 11628370 (Version 1)
Quarter: 2015Q4

REPORT INFORMATION
  Report Type: Spontaneous
  Country: None (occurrence: None)
  Receive Date: 20151013
  Receipt Date: 20151013
  Transmission Date: 20160304
  Serious: Yes (Disabling, Other)
  Sender: FDA-Public Use
  Company Number: None

PATIENT
  Age: 78 Year
  Sex: Male
  Weight: 69.85 kg

DRUGS (14)
  1. METHOCARBAMAL [Concomitant]
  2. NITROFURANTOIN MONOHYD MACRO [Suspect]
     Active Substance: NITROFURANTOIN\NITROFURANTOIN MONOHYDRATE
     Indication: INFECTION
     Route: 048
     Dates: start: 20151003, end: 20151007
  3. JUICE PLUS WHOLE FOOD SUPPLEMENTS [Concomitant]
  4. ESZOPICLONE. [Concomitant]
     Active Substance: ESZOPICLONE
  5. OXYCODONE-ACETAMINOPHEN [Concomitant]
     Active Substance: ACETAMINOPHEN\OXYCODONE HYDROCHLORIDE
  6. OMEGA-3 + VITAMIN D3 CAPS [Concomitant]
  7. METOPROLOL SUCCINATE ER [Concomitant]
     Active Substance: METOPROLOL SUCCINATE
  8. ALPRAZOLAM. [Concomitant]
     Active Substance: ALPRAZOLAM
  9. MELATONIN [Concomitant]
     Active Substance: MELATONIN
  10. MOVE FREE ULTRA [Concomitant]
  11. ASTAXANTHIN [Concomitant]
  12. GABAPENTIN. [Concomitant]
     Active Substance: GABAPENTIN
  13. RANITIDINE HCL [Concomitant]
     Active Substance: RANITIDINE HYDROCHLORIDE
  14. 5 HTP /00439301/ [Concomitant]
     Active Substance: OXITRIPTAN

REACTIONS (11)
  - Feeling hot [None]
  - Rash [None]
  - Peripheral swelling [None]
  - Body temperature increased [None]
  - Asthenia [None]
  - Tremor [None]
  - Gait disturbance [None]
  - Somnolence [None]
  - Balance disorder [None]
  - Fatigue [None]
  - Confusional state [None]

NARRATIVE: CASE EVENT DATE: 20151005
